FAERS Safety Report 10625964 (Version 1)
Quarter: 2014Q4

REPORT INFORMATION
  Report Type: Spontaneous
  Country: US (occurrence: None)
  Receive Date: 20141121
  Receipt Date: 20141121
  Transmission Date: 20150529
  Serious: No
  Sender: FDA-Public Use
  Company Number: 163-10004-14074844

PATIENT
  Age: 53 Year
  Sex: Female
  Weight: 74.84 kg

DRUGS (2)
  1. CIMZIA [Concomitant]
     Active Substance: CERTOLIZUMAB PEGOL
  2. OTEZLA [Suspect]
     Active Substance: APREMILAST
     Indication: RHEUMATOID ARTHRITIS
     Dosage: STARTER TITRATION
     Route: 048
     Dates: start: 20140723

REACTIONS (4)
  - Headache [None]
  - Muscle spasms [None]
  - Nausea [None]
  - Diarrhoea [None]

NARRATIVE: CASE EVENT DATE: 20140725
